FAERS Safety Report 9456140 (Version 1)
Quarter: 2013Q3

REPORT INFORMATION
  Report Type: Spontaneous
  Country: JP (occurrence: None)
  Receive Date: 20130808
  Receipt Date: 20130808
  Transmission Date: 20140515
  Serious: Yes (Hospitalization, Other)
  Sender: FDA-Public Use
  Company Number: SYM-2013-07619

PATIENT
  Age: 66 Year
  Sex: Male
  Weight: 63 kg

DRUGS (9)
  1. FLUOROURACIL (FLUOROURACIL) (INJECTION) (FLUOROURACIL) [Suspect]
     Indication: RECTAL CANCER
     Route: 040
     Dates: start: 20110418, end: 20110418
  2. CALCIUM LEVOFOLINATE [Suspect]
     Indication: RECTAL CANCER
     Dosage: 320 MG, DAILY, INTRAVENOUS DRIP
     Route: 041
     Dates: start: 20110418, end: 20110418
  3. ELPLAT [Suspect]
     Indication: RECTAL CANCER
     Route: 041
     Dates: start: 20110418, end: 20110418
  4. AVASTIN (BEVACIZUMAB) (INJECTION) (BEVACIZUMAB) [Suspect]
     Indication: RECTAL CANCER
     Route: 041
     Dates: start: 20110418, end: 20110418
  5. KYTRIL (GRANISESTRON HYDROCHLORIDE) (GRANISETRON HYDROCHLORIDE) [Concomitant]
  6. DECADRON (DEXAMETHASONE) (DEXAMETHASONE) [Concomitant]
  7. EMEND (APREPITANT) (APREPITANT) [Concomitant]
  8. OMEPRAL (OMEPRAZOLE) (OMEPRAZOLE) [Concomitant]
  9. GRAN (FILGRASTIM) (FILGRASTIM) [Concomitant]

REACTIONS (5)
  - Duodenal ulcer [None]
  - Gastrooesophageal reflux disease [None]
  - Abdominal pain [None]
  - Neutrophil count decreased [None]
  - White blood cell count decreased [None]
